FAERS Safety Report 19111493 (Version 1)
Quarter: 2021Q2

REPORT INFORMATION
  Report Type: Spontaneous
  Country: IN (occurrence: IN)
  Receive Date: 20210408
  Receipt Date: 20210408
  Transmission Date: 20210717
  Serious: Yes (Death)
  Sender: FDA-Public Use
  Company Number: IN-PFIZER INC-2019138106

PATIENT
  Age: 49 Year
  Sex: Female

DRUGS (44)
  1. PALBACE [Suspect]
     Active Substance: PALBOCICLIB
     Dosage: 100 MG, 1X/DAY
     Route: 048
     Dates: end: 20210222
  2. ZOLEDRONIC ACID [Concomitant]
     Active Substance: ZOLEDRONIC ACID
     Dosage: 4 MG, UNK
     Dates: start: 20191129
  3. ZOLEDRONIC ACID [Concomitant]
     Active Substance: ZOLEDRONIC ACID
     Dosage: 4 MG, UNK
     Dates: start: 20190129
  4. ZOLEDRONIC ACID [Concomitant]
     Active Substance: ZOLEDRONIC ACID
     Dosage: 4 MG, UNK
     Dates: start: 20200506
  5. FULVESTRANT. [Concomitant]
     Active Substance: FULVESTRANT
     Dosage: UNK
     Route: 030
     Dates: start: 20180927
  6. FULVESTRANT. [Concomitant]
     Active Substance: FULVESTRANT
     Dosage: UNK
     Route: 030
     Dates: start: 20190529
  7. ZOLEDRONIC ACID [Concomitant]
     Active Substance: ZOLEDRONIC ACID
     Dosage: 4 MG, UNK
     Dates: start: 20190301
  8. ZOLEDRONIC ACID [Concomitant]
     Active Substance: ZOLEDRONIC ACID
     Dosage: 4 MG, UNK
     Dates: start: 20200101
  9. KATADOL [Concomitant]
     Dosage: 100MG 1?0?1 X TO CONTINUE(AFTER FOOD)
  10. FULVESTRANT. [Concomitant]
     Active Substance: FULVESTRANT
     Dosage: UNK
     Route: 030
     Dates: start: 20181025
  11. FULVESTRANT. [Concomitant]
     Active Substance: FULVESTRANT
     Dosage: 500 MG, UNK
     Route: 030
     Dates: start: 20181129
  12. FULVESTRANT. [Concomitant]
     Active Substance: FULVESTRANT
     Dosage: UNK
     Route: 030
     Dates: start: 20200101
  13. FULVESTRANT. [Concomitant]
     Active Substance: FULVESTRANT
     Dosage: UNK
     Route: 030
     Dates: start: 20200629
  14. ZOLEDRONIC ACID [Concomitant]
     Active Substance: ZOLEDRONIC ACID
     Dosage: 4 MG, UNK
     Dates: start: 20190921
  15. SHELCAL [Concomitant]
     Active Substance: CALCIUM CARBONATE\CHOLECALCIFEROL
     Dosage: 500MG 1?0?0 X TO CONTINUE(AFTER FOOD)
  16. DEXONA [DEXAMETHASONE] [Concomitant]
     Active Substance: DEXAMETHASONE
     Dosage: 4MG IN 20ML WATER FOR ORAL TRASH
  17. ZOLEDRONIC ACID [Concomitant]
     Active Substance: ZOLEDRONIC ACID
     Dosage: 4 MG, UNK
     Dates: start: 20190529
  18. ZOLEDRONIC ACID [Concomitant]
     Active Substance: ZOLEDRONIC ACID
     Dosage: 4 MG, UNK
     Dates: start: 20190807
  19. ACIVIR [ACICLOVIR] [Concomitant]
     Dosage: 800MG FIVE TIMES DAILY X 1WEEK
  20. HEXETIDINE [Concomitant]
     Active Substance: HEXETIDINE
     Dosage: MOUTH WASHES 3 TIMES A DAY TO CONTINUE
  21. LIGNOCAINE HCL [Concomitant]
     Active Substance: LIDOCAINE HYDROCHLORIDE
     Dosage: GEL FOR LOCAL APPLICATION
  22. GABAPENTIN. [Concomitant]
     Active Substance: GABAPENTIN
     Dosage: 100MG, 0?0?1 (7 PM) X TO CONTINUE (IRRESPECTIVE OF FOOD INTAKE)
  23. TAPENAX FR [Concomitant]
     Dosage: 50MG, 1?0?1 X TO CONTINUE (AFTER FOOD)
  24. PALBACE [Suspect]
     Active Substance: PALBOCICLIB
     Dosage: 100 MG, ALTERNATE DAY
     Route: 048
  25. FULVESTRANT. [Concomitant]
     Active Substance: FULVESTRANT
     Dosage: UNK
     Route: 030
     Dates: start: 20190921
  26. ZOLEDRONIC ACID [Concomitant]
     Active Substance: ZOLEDRONIC ACID
     Dosage: 4 MG, UNK
     Dates: start: 20191229
  27. MAXGALIN [Concomitant]
     Dosage: 75MG 0?0?1 (7 PM) X TO CONTINUE (IRRESPECTIVE OF FOOD INTAKE)
  28. CETIRIZINE [Concomitant]
     Active Substance: CETIRIZINE HYDROCHLORIDE
     Dosage: SOS FOR ITCHING
  29. DOLO 650 [Concomitant]
     Dosage: 650MG, 1?1?1 X TO CONTINUE (AFTER FOOD)
  30. PALBACE [Suspect]
     Active Substance: PALBOCICLIB
     Indication: BREAST CANCER METASTATIC
     Dosage: 125 MG, DAILY 21/28 DAYS
     Route: 048
     Dates: start: 20181130, end: 20210222
  31. FULVESTRANT. [Concomitant]
     Active Substance: FULVESTRANT
     Dosage: UNK
     Route: 030
     Dates: start: 20190301
  32. FULVESTRANT. [Concomitant]
     Active Substance: FULVESTRANT
     Dosage: UNK
     Route: 030
     Dates: start: 20190807
  33. CALCIROL [CALCIUM CARBONATE;COLECALCIFEROL] [Concomitant]
     Dosage: SACHET 60000 IU WEEKLY FOR 6 WEEKS
  34. FULVESTRANT. [Concomitant]
     Active Substance: FULVESTRANT
     Dosage: UNK
     Route: 030
     Dates: start: 20190129
  35. FULVESTRANT. [Concomitant]
     Active Substance: FULVESTRANT
     Dosage: 500 MG, UNK
     Route: 030
     Dates: start: 20190401
  36. FULVESTRANT. [Concomitant]
     Active Substance: FULVESTRANT
     Dosage: UNK
     Route: 030
     Dates: start: 20200506
  37. CALOSOFT [Concomitant]
     Active Substance: ALOE VERA LEAF\CALAMINE\LIGHT MINERAL OIL
     Dosage: LOTION FOR LOCAL APPLICATION
  38. DULOXETINE. [Concomitant]
     Active Substance: DULOXETINE
     Dosage: 20MG 1?0?0 X TO CONTINUE (AFTER FOOD)
  39. FULVESTRANT. [Concomitant]
     Active Substance: FULVESTRANT
     Dosage: UNK
     Route: 030
     Dates: start: 20181229
  40. ZOLEDRONIC ACID [Concomitant]
     Active Substance: ZOLEDRONIC ACID
     Dosage: 4 MG, UNK
     Dates: start: 20180927
  41. ZOLEDRONIC ACID [Concomitant]
     Active Substance: ZOLEDRONIC ACID
     Dosage: 4 MG, UNK
     Dates: start: 20181025
  42. ZOLEDRONIC ACID [Concomitant]
     Active Substance: ZOLEDRONIC ACID
     Dosage: 4 MG, UNK
     Dates: start: 20190401
  43. ZOLEDRONIC ACID [Concomitant]
     Active Substance: ZOLEDRONIC ACID
     Dosage: 4 MG, UNK
     Dates: start: 20200629
  44. RETENSE [Concomitant]
     Dosage: 100MG 1?0?1 X TO CONTINUE(AFTER FOOD)

REACTIONS (17)
  - Fatigue [Unknown]
  - Haemoglobin decreased [Unknown]
  - Eye pain [Unknown]
  - Back pain [Unknown]
  - Cough [Unknown]
  - Arthralgia [Unknown]
  - Blood pressure increased [Unknown]
  - Pain in jaw [Unknown]
  - Heart rate increased [Unknown]
  - Pain in extremity [Unknown]
  - Pyrexia [Unknown]
  - Bone pain [Unknown]
  - Death [Fatal]
  - Fall [Unknown]
  - Oral herpes [Unknown]
  - Blood cholesterol abnormal [Unknown]
  - Sleep disorder [Unknown]
